FAERS Safety Report 7293669-8 (Version None)
Quarter: 2011Q1

REPORT INFORMATION
  Report Type: 
  Country: None (occurrence: None)
  Receive Date: 20110215
  Receipt Date: 20110207
  Transmission Date: 20110831
  Serious: Yes (Other)
  Sender: FDA-Public Use
  Company Number: B0695777A

PATIENT
  Sex: Female
  Weight: 67 kg

DRUGS (2)
  1. LAMICTAL [Suspect]
     Indication: DEPRESSION
     Dosage: 1UNIT PER DAY
     Route: 048
     Dates: start: 20101106, end: 20101121
  2. CYMBALTA [Concomitant]
     Indication: DEPRESSION
     Dosage: 1UNIT PER DAY
     Route: 048
     Dates: start: 20090301, end: 20101121

REACTIONS (9)
  - VULVAR EROSION [None]
  - PAPULE [None]
  - MUCOSAL EROSION [None]
  - STEVENS-JOHNSON SYNDROME [None]
  - GENITAL PAIN [None]
  - RASH PAPULAR [None]
  - TONGUE OEDEMA [None]
  - ORAL PAIN [None]
  - LIP OEDEMA [None]
